FAERS Safety Report 9942959 (Version 1)
Quarter: 2014Q1

REPORT INFORMATION
  Report Type: Report from Study
  Country: US (occurrence: US)
  Receive Date: 20140303
  Receipt Date: 20140303
  Transmission Date: 20141002
  Serious: No
  Sender: FDA-Public Use
  Company Number: US-ABBVIE-13P-163-1044586-00

PATIENT
  Age: 28 Year
  Sex: Female

DRUGS (5)
  1. HUMIRA [Suspect]
     Indication: HIDRADENITIS
     Dates: start: 2012
  2. HUMIRA [Suspect]
     Dates: start: 20130125
  3. HUMIRA [Suspect]
     Dates: start: 20130201
  4. IUD NOS [Concomitant]
     Indication: CONTRACEPTION
  5. PRILOSEC [Concomitant]
     Indication: DYSPEPSIA

REACTIONS (6)
  - Wrong technique in drug usage process [Unknown]
  - Drug dose omission [Unknown]
  - Off label use [Unknown]
  - Injection site pain [Not Recovered/Not Resolved]
  - Injection site pain [Not Recovered/Not Resolved]
  - Anxiety [Unknown]
